FAERS Safety Report 6977517-9 (Version None)
Quarter: 2010Q3

REPORT INFORMATION
  Report Type: 
  Country: None (occurrence: None)
  Receive Date: 20100910
  Receipt Date: 20100831
  Transmission Date: 20110219
  Serious: Yes (Other)
  Sender: FDA-Public Use
  Company Number: US-AMGEN-QUU419435

PATIENT
  Sex: Female
  Weight: 68.1 kg

DRUGS (9)
  1. ENBREL [Suspect]
     Indication: RHEUMATOID ARTHRITIS
     Route: 058
     Dates: start: 20090113, end: 20100325
  2. METHOTREXATE [Concomitant]
     Dates: start: 20071218
  3. PIROXICAM [Concomitant]
  4. FOLIC ACID [Concomitant]
  5. UNSPECIFIED THYROID MEDICATION [Concomitant]
  6. VALTREX [Concomitant]
  7. PREDNISONE [Concomitant]
  8. LEVOTHYROXINE SODIUM [Concomitant]
  9. CALCIUM [Concomitant]

REACTIONS (31)
  - BURNING SENSATION [None]
  - CARPAL TUNNEL SYNDROME [None]
  - CENTRAL NERVOUS SYSTEM LESION [None]
  - DIZZINESS [None]
  - DRY EYE [None]
  - FATIGUE [None]
  - FEELING ABNORMAL [None]
  - HYPERREFLEXIA [None]
  - HYPOAESTHESIA [None]
  - HYPOAESTHESIA FACIAL [None]
  - INTERVERTEBRAL DISC DEGENERATION [None]
  - JOINT STIFFNESS [None]
  - LIGAMENT DISORDER [None]
  - MICTURITION URGENCY [None]
  - MOVEMENT DISORDER [None]
  - MYELITIS [None]
  - NERVOUS SYSTEM DISORDER [None]
  - NEURALGIA [None]
  - NEUROPATHY PERIPHERAL [None]
  - PALPITATIONS [None]
  - PARAESTHESIA [None]
  - POLYARTHRITIS [None]
  - PROCEDURAL HEADACHE [None]
  - SENSORY DISTURBANCE [None]
  - SPONDYLITIS [None]
  - SYNOVITIS [None]
  - TEMPERATURE INTOLERANCE [None]
  - THROAT TIGHTNESS [None]
  - THYROID NEOPLASM [None]
  - UPPER RESPIRATORY TRACT INFECTION [None]
  - VERTIGO [None]
